FAERS Safety Report 21644067 (Version 4)
Quarter: 2023Q2

REPORT INFORMATION
  Report Type: Report from Study
  Country: US (occurrence: US)
  Receive Date: 20221125
  Receipt Date: 20230428
  Transmission Date: 20230721
  Serious: Yes (Other)
  Sender: FDA-Public Use
  Company Number: US-002147023-NVSC2022US261413

PATIENT
  Sex: Female

DRUGS (1)
  1. AFINITOR [Suspect]
     Active Substance: EVEROLIMUS
     Indication: Product used for unknown indication
     Dosage: UNK
     Route: 065

REACTIONS (6)
  - Lung neoplasm malignant [Unknown]
  - Hepatic cancer [Unknown]
  - Neoplasm malignant [Unknown]
  - Neoplasm progression [Unknown]
  - Feeling abnormal [Unknown]
  - Stomatitis [Unknown]
